FAERS Safety Report 24845093 (Version 1)
Quarter: 2025Q1

REPORT INFORMATION
  Report Type: Spontaneous
  Country: US (occurrence: None)
  Receive Date: 20250114
  Receipt Date: 20250114
  Transmission Date: 20250409
  Serious: Yes (Hospitalization)
  Sender: FDA-CTU
  Company Number: None

PATIENT
  Age: 17 Day
  Sex: Female
  Weight: 3.6 kg

DRUGS (2)
  1. BEYFORTUS [Suspect]
     Active Substance: NIRSEVIMAB-ALIP
     Route: 030
     Dates: start: 20250110, end: 20250110
  2. BEYFORTUS [Concomitant]
     Active Substance: NIRSEVIMAB-ALIP
     Dates: start: 20250110, end: 20250110

REACTIONS (2)
  - Nonspecific reaction [None]
  - Irregular breathing [None]

NARRATIVE: CASE EVENT DATE: 20250110
